FAERS Safety Report 9821344 (Version 1)
Quarter: 2014Q1

REPORT INFORMATION
  Report Type: Spontaneous
  Country: US (occurrence: None)
  Receive Date: 20140115
  Receipt Date: 20140115
  Transmission Date: 20141002
  Serious: Yes (Other)
  Sender: FDA-Public Use
  Company Number: None

PATIENT
  Age: 6 Year
  Sex: Male
  Weight: 24.95 kg

DRUGS (1)
  1. TRETINOIN [Suspect]
     Indication: MOLLUSCUM CONTAGIOSUM
     Dates: start: 20140107, end: 20140109

REACTIONS (5)
  - Skin exfoliation [None]
  - Haemorrhage [None]
  - Erythema [None]
  - Pruritus [None]
  - Infection [None]
